FAERS Safety Report 9240212 (Version 1)
Quarter: 2013Q2

REPORT INFORMATION
  Report Type: Spontaneous
  Country: US (occurrence: None)
  Receive Date: 20130417
  Receipt Date: 20130417
  Transmission Date: 20140414
  Serious: Yes (Hospitalization)
  Sender: FDA-Public Use
  Company Number: AXC-2013-000100

PATIENT
  Age: 75 Year
  Sex: Female
  Weight: 104.3 kg

DRUGS (17)
  1. CANASA [Suspect]
     Indication: ANAL FISSURE
     Dosage: 1000 MG QOD, (ALTERNATING WITH ANUSOL), RECTAL
     Route: 054
     Dates: start: 20100916, end: 20130225
  2. BENTYL [Suspect]
     Route: 048
  3. ANUSOL /00117301/ (BISMUTH HYDROXIDE, BISMUTH SUBGALLATE, BORIC ACID, MYROXYLON BALSAMUM VAR. PEREIRAE BALSAM, ZINC OXIDE) SUPPOSITORY [Concomitant]
  4. CLONIDINE (CLONIDINE) [Concomitant]
  5. FLECAINIDE (FLECAINIDE) [Concomitant]
  6. LISINOPRIL/HCTZ (HYDROCHLOROTHIAZIDE, LISINOPRIL) [Concomitant]
  7. PLAVIX (CLOPIDOGREL BISULFATE) [Concomitant]
  8. LORTAB /00607101/ (HYDROCODONE BITARTRATE, PARACETAMOL) [Concomitant]
  9. PREVACID (LANSOPRAZOLE) [Concomitant]
  10. CELEBREX (CELECOXIB) [Concomitant]
  11. PROLIA (DENOSUMAB) [Concomitant]
  12. LACTULOSE (LACTULOSE) [Concomitant]
  13. DIAZEPAM (DIAZEPAM) [Concomitant]
  14. LEVSIN (HYOSCYAMINE SULFATE) [Concomitant]
  15. COLACE [Concomitant]
  16. TYLENOL /00020001/ (PARACETAMOL) [Concomitant]
  17. ALPRAZOLAM (ALPRAZOLAM) [Concomitant]

REACTIONS (2)
  - Drug ineffective for unapproved indication [None]
  - Meniscus injury [None]
